FAERS Safety Report 5387383-3 (Version None)
Quarter: 2007Q3

REPORT INFORMATION
  Report Type: 
  Country: None (occurrence: None)
  Receive Date: 20070703
  Receipt Date: 20070406
  Transmission Date: 20080115
  Serious: No
  Sender: FDA-Public Use
  Company Number: 2007PV032786

PATIENT
  Age: 51 Year
  Sex: Female

DRUGS (4)
  1. SYMLIN [Suspect]
     Indication: TYPE 2 DIABETES MELLITUS
     Dosage: 150 MCG;SC; 120 MCG;SC; 102 MCG; SC; 90 MCG; SC; 60 MCG; SC
     Route: 058
     Dates: start: 20070101, end: 20070101
  2. SYMLIN [Suspect]
     Indication: TYPE 2 DIABETES MELLITUS
     Dosage: 150 MCG;SC; 120 MCG;SC; 102 MCG; SC; 90 MCG; SC; 60 MCG; SC
     Route: 058
     Dates: start: 20070101, end: 20070101
  3. SYMLIN [Suspect]
     Indication: TYPE 2 DIABETES MELLITUS
     Dosage: 150 MCG;SC; 120 MCG;SC; 102 MCG; SC; 90 MCG; SC; 60 MCG; SC
     Route: 058
     Dates: start: 20070301, end: 20070101
  4. SYMLIN [Suspect]
     Indication: TYPE 2 DIABETES MELLITUS
     Dosage: 150 MCG;SC; 120 MCG;SC; 102 MCG; SC; 90 MCG; SC; 60 MCG; SC
     Route: 058
     Dates: start: 20070101

REACTIONS (2)
  - INJECTION SITE PAIN [None]
  - NAUSEA [None]
